FAERS Safety Report 15222765 (Version 4)
Quarter: 2020Q4

REPORT INFORMATION
  Report Type: Report from Study
  Country: DE (occurrence: DE)
  Receive Date: 20180731
  Receipt Date: 20201218
  Transmission Date: 20210113
  Serious: Yes (Hospitalization)
  Sender: FDA-Public Use
  Company Number: DE-SHIRE-DE201827634

PATIENT

DRUGS (16)
  1. TEDUGLUTIDE [Suspect]
     Active Substance: TEDUGLUTIDE
     Indication: SHORT-BOWEL SYNDROME
     Dosage: 2.8 MG, UNK
     Route: 065
     Dates: start: 20150714, end: 20170918
  2. TEDUGLUTIDE [Suspect]
     Active Substance: TEDUGLUTIDE
     Dosage: 2.6 MG, UNK
     Route: 065
     Dates: start: 20171109, end: 201802
  3. TEDUGLUTIDE [Suspect]
     Active Substance: TEDUGLUTIDE
     Dosage: 2.6 MG, UNK
     Route: 065
     Dates: start: 20171109, end: 201802
  4. TEDUGLUTIDE [Suspect]
     Active Substance: TEDUGLUTIDE
     Dosage: 2.8 MG, UNK
     Route: 065
     Dates: start: 201802
  5. XIFAXAN [Concomitant]
     Active Substance: RIFAXIMIN
     Indication: GASTROINTESTINAL BACTERIAL OVERGROWTH
  6. REKAWAN [Concomitant]
     Active Substance: POTASSIUM CHLORIDE
     Indication: HYPOKALAEMIA
     Dosage: 1000 MILLIGRAM, BID
     Route: 048
     Dates: start: 201709
  7. TEDUGLUTIDE [Suspect]
     Active Substance: TEDUGLUTIDE
     Indication: SHORT-BOWEL SYNDROME
     Dosage: 2.8 MG, UNK
     Route: 065
     Dates: start: 20150714, end: 20170918
  8. TEDUGLUTIDE [Suspect]
     Active Substance: TEDUGLUTIDE
     Dosage: 2.8 MG, UNK
     Route: 065
     Dates: start: 201802
  9. NORTASE [Concomitant]
     Indication: FLATULENCE
  10. TEDUGLUTIDE [Suspect]
     Active Substance: TEDUGLUTIDE
     Indication: SHORT-BOWEL SYNDROME
     Dosage: 2.8 MG, UNK
     Route: 065
     Dates: start: 20150714, end: 20170918
  11. LEVOFLOXACIN. [Concomitant]
     Active Substance: LEVOFLOXACIN
     Indication: URINARY TRACT INFECTION
     Dosage: 500 MILLIGRAM, QD
     Route: 048
     Dates: start: 201705, end: 201705
  12. TEDUGLUTIDE [Suspect]
     Active Substance: TEDUGLUTIDE
     Dosage: 2.6 MG, UNK
     Route: 065
     Dates: start: 20171109, end: 201802
  13. TEDUGLUTIDE [Suspect]
     Active Substance: TEDUGLUTIDE
     Indication: SHORT-BOWEL SYNDROME
     Dosage: 2.8 MG, UNK
     Route: 065
     Dates: start: 20150714, end: 20170918
  14. TEDUGLUTIDE [Suspect]
     Active Substance: TEDUGLUTIDE
     Dosage: 2.6 MG, UNK
     Route: 065
     Dates: start: 20171109, end: 201802
  15. TEDUGLUTIDE [Suspect]
     Active Substance: TEDUGLUTIDE
     Dosage: 2.8 MG, UNK
     Route: 065
     Dates: start: 201802
  16. TEDUGLUTIDE [Suspect]
     Active Substance: TEDUGLUTIDE
     Dosage: 2.8 MG, UNK
     Route: 065
     Dates: start: 201802

REACTIONS (3)
  - Nephrolithiasis [Recovered/Resolved]
  - Fatigue [Unknown]
  - Vitamin D deficiency [Recovered/Resolved]

NARRATIVE: CASE EVENT DATE: 20180222
